FAERS Safety Report 8170575-8 (Version None)
Quarter: 2012Q1

REPORT INFORMATION
  Report Type: 
  Country: None (occurrence: None)
  Receive Date: 20120228
  Receipt Date: 20120223
  Transmission Date: 20120608
  Serious: Yes (Other)
  Sender: FDA-Public Use
  Company Number: BE-ROCHE-1042894

PATIENT

DRUGS (2)
  1. XELODA [Suspect]
     Indication: PRODUCT USED FOR UNKNOWN INDICATION
     Dates: start: 20111101
  2. XELODA [Suspect]

REACTIONS (3)
  - INCONTINENCE [None]
  - LOOSE TOOTH [None]
  - FATIGUE [None]
